FAERS Safety Report 24195655 (Version 2)
Quarter: 2024Q3

REPORT INFORMATION
  Report Type: Report from Study
  Country: NL (occurrence: NL)
  Receive Date: 20240809
  Receipt Date: 20240830
  Transmission Date: 20241016
  Serious: Yes (Hospitalization, Other)
  Sender: ABBVIE
  Company Number: NL-ABBVIE-5871935

PATIENT
  Sex: Female

DRUGS (8)
  1. CARBIDOPA\LEVODOPA [Suspect]
     Active Substance: CARBIDOPA\LEVODOPA
     Indication: Parkinson^s disease
     Dosage: DURATION TEXT: REMAINS AT 16 HOURS
     Route: 050
     Dates: start: 20190107
  2. CARBIDOPA\LEVODOPA [Suspect]
     Active Substance: CARBIDOPA\LEVODOPA
     Dosage: MD:12.0 ML, CD: 3.3 ML/H, ED:3.00 ML?DURATION TEXT: REMAINS AT 16 HOURS
     Route: 050
     Dates: start: 20240613, end: 20240617
  3. CARBIDOPA\LEVODOPA [Suspect]
     Active Substance: CARBIDOPA\LEVODOPA
     Dosage: MD:11.5 ML, CD: 3.3 ML/H, ED:3.00 ML?DURATION TEXT: REMAINS AT 16 HOURS
     Route: 050
     Dates: start: 20240206, end: 20240613
  4. CARBIDOPA\LEVODOPA [Suspect]
     Active Substance: CARBIDOPA\LEVODOPA
     Dosage: MD:12.0 ML, CD: 3.3 ML/H, ED:3.00 ML?DURATION TEXT: REMAINS AT 16 HOURS
     Route: 050
     Dates: start: 20240617
  5. CARBIDOPA\LEVODOPA [Suspect]
     Active Substance: CARBIDOPA\LEVODOPA
     Dosage: MD:11.5 ML, CD: 3.3 ML/H, ED:3.00 ML?DURATION TEXT: REMAINS AT 16 HOURS
     Route: 050
     Dates: start: 20231228, end: 20240206
  6. ROPINIROLE [Concomitant]
     Active Substance: ROPINIROLE
     Indication: Parkinson^s disease
     Dosage: 2 TABLET
  7. LEVODOPA [Concomitant]
     Active Substance: LEVODOPA
     Indication: Parkinson^s disease
  8. NEUPRO [Concomitant]
     Active Substance: ROTIGOTINE
     Indication: Product used for unknown indication
     Dosage: PLASTER

REACTIONS (22)
  - Hospitalisation [Not Recovered/Not Resolved]
  - Disturbance in attention [Not Recovered/Not Resolved]
  - Device use error [Not Recovered/Not Resolved]
  - Hallucination [Not Recovered/Not Resolved]
  - Confusional state [Not Recovered/Not Resolved]
  - Knee arthroplasty [Recovered/Resolved]
  - Memory impairment [Not Recovered/Not Resolved]
  - Device issue [Unknown]
  - Restlessness [Not Recovered/Not Resolved]
  - Loss of personal independence in daily activities [Not Recovered/Not Resolved]
  - Abnormal dreams [Not Recovered/Not Resolved]
  - Walking aid user [Not Recovered/Not Resolved]
  - Intestinal prolapse [Not Recovered/Not Resolved]
  - Dyskinesia [Not Recovered/Not Resolved]
  - Rehabilitation therapy [Not Recovered/Not Resolved]
  - Tension [Not Recovered/Not Resolved]
  - Pyrexia [Not Recovered/Not Resolved]
  - Knee operation [Recovered/Resolved]
  - Weight decreased [Not Recovered/Not Resolved]
  - Cognitive disorder [Not Recovered/Not Resolved]
  - On and off phenomenon [Not Recovered/Not Resolved]
  - Anaesthetic complication neurological [Not Recovered/Not Resolved]

NARRATIVE: CASE EVENT DATE: 20240801
